FAERS Safety Report 16412520 (Version 1)
Quarter: 2019Q2

REPORT INFORMATION
  Report Type: Report from Study
  Country: None (occurrence: US)
  Receive Date: 20190610
  Receipt Date: 20190610
  Transmission Date: 20190711
  Serious: Yes (Other)
  Sender: FDA-Public Use
  Company Number: US-ABBVIE-19K-163-2700426-00

PATIENT
  Age: 67 Year
  Sex: Male
  Weight: 129.39 kg

DRUGS (4)
  1. HUMIRA [Suspect]
     Active Substance: ADALIMUMAB
     Indication: RHEUMATOID ARTHRITIS
     Route: 058
     Dates: start: 2015
  2. METOPROLOL. [Concomitant]
     Active Substance: METOPROLOL
     Indication: HYPERTENSION
  3. HUMIRA [Suspect]
     Active Substance: ADALIMUMAB
     Route: 058
  4. BENAZEPRIL [Concomitant]
     Active Substance: BENAZEPRIL HYDROCHLORIDE
     Indication: HYPERTENSION

REACTIONS (8)
  - Foot deformity [Recovering/Resolving]
  - Rheumatoid arthritis [Unknown]
  - Skin irritation [Unknown]
  - Pain in extremity [Unknown]
  - Incision site erythema [Recovering/Resolving]
  - Musculoskeletal pain [Unknown]
  - Scab [Unknown]
  - Exostosis [Recovering/Resolving]

NARRATIVE: CASE EVENT DATE: 2019
